FAERS Safety Report 4915819-8 (Version None)
Quarter: 2006Q1

REPORT INFORMATION
  Report Type: 
  Country: None (occurrence: None)
  Receive Date: 20060217
  Receipt Date: 20051011
  Transmission Date: 20060701
  Serious: Yes (Hospitalization)
  Sender: FDA-Public Use
  Company Number: BE-ROCHE-420891

PATIENT
  Age: 61 Year
  Sex: Male

DRUGS (30)
  1. DACLIZUMAB [Suspect]
     Route: 042
     Dates: start: 20050628, end: 20050628
  2. DACLIZUMAB [Suspect]
     Route: 042
     Dates: start: 20050705, end: 20050705
  3. MYCOPHENOLATE MOFETIL [Suspect]
     Route: 042
     Dates: start: 20050628, end: 20050628
  4. MYCOPHENOLATE MOFETIL [Suspect]
     Route: 042
     Dates: start: 20050629, end: 20050703
  5. MYCOPHENOLATE MOFETIL [Suspect]
     Route: 048
     Dates: start: 20050704, end: 20060202
  6. MYCOPHENOLATE MOFETIL [Suspect]
     Route: 048
     Dates: start: 20060203
  7. TACROLIMUS [Suspect]
     Route: 048
     Dates: start: 20050703
  8. METHYLPREDNISOLONE 16MG TAB [Suspect]
     Route: 065
     Dates: start: 20050628, end: 20050922
  9. LORMETAZEPAM [Concomitant]
     Dates: start: 20050728
  10. AMPICILLIN SODIUM [Concomitant]
     Indication: INFECTION PROPHYLAXIS
     Dates: start: 20050628, end: 20050629
  11. CEFOTAXIM [Concomitant]
     Indication: INFECTION PROPHYLAXIS
     Dates: start: 20050628, end: 20050629
  12. TOBRAMYCIN [Concomitant]
     Indication: INFECTION PROPHYLAXIS
     Dates: start: 20050628, end: 20050628
  13. AMPHOTERICIN B [Concomitant]
     Indication: INFECTION PROPHYLAXIS
     Dates: start: 20050628, end: 20050628
  14. POLYMYXINE [Concomitant]
     Indication: INFECTION PROPHYLAXIS
     Dates: start: 20050628, end: 20050628
  15. NYSTATINE [Concomitant]
     Dates: start: 20050629, end: 20050923
  16. RANITIDINE [Concomitant]
     Indication: PROPHYLAXIS
     Dosage: STOPPED ON 21 SEPTEMBER 2005 AND RESTARTED ON 12 OCTOBER 2005
     Dates: start: 20050628
  17. DUOVENT [Concomitant]
     Indication: ANTIFUNGAL PROPHYLAXIS
     Dates: start: 20050628, end: 20050628
  18. METOPROLOL TARTRATE [Concomitant]
     Indication: HYPERTENSION
     Dates: start: 20050629
  19. AMLODIPINE [Concomitant]
     Indication: HYPERTENSION
     Dates: start: 20050629, end: 20050630
  20. ENOXAPARIN SODIUM [Concomitant]
     Dates: start: 20050629, end: 20050707
  21. MAGNESIUM SULFATE [Concomitant]
     Dates: start: 20050628, end: 20051004
  22. FUROSEMIDE [Concomitant]
     Dates: start: 20050630, end: 20050708
  23. ACETAMINOPHEN [Concomitant]
     Indication: ABDOMINAL PAIN
     Dates: start: 20050630
  24. EUSAPRIM [Concomitant]
     Indication: ANTIFUNGAL PROPHYLAXIS
     Dates: start: 20050630, end: 20050921
  25. CALCIUM CARBONATE [Concomitant]
     Dates: start: 20050701
  26. TRAMADOL HCL [Concomitant]
     Indication: BACK PAIN
     Dates: start: 20051007, end: 20051009
  27. MOVICOL [Concomitant]
     Dates: start: 20051012, end: 20051012
  28. FLEET [Concomitant]
     Dates: start: 20051012, end: 20051012
  29. LACTULOSE [Concomitant]
     Dates: start: 20051125, end: 20051215
  30. IBUPROFEN [Concomitant]
     Indication: BACK PAIN
     Dates: start: 20050923, end: 20051003

REACTIONS (3)
  - BACTERIAL INFECTION [None]
  - INTERVERTEBRAL DISCITIS [None]
  - OSTEOPENIA [None]
